FAERS Safety Report 7495118-3 (Version None)
Quarter: 2011Q2

REPORT INFORMATION
  Report Type: 
  Country: None (occurrence: None)
  Receive Date: 20110520
  Receipt Date: 20110516
  Transmission Date: 20111010
  Serious: Yes (Hospitalization)
  Sender: FDA-Public Use
  Company Number: US-US-EMD SERONO, INC.-232506J10USA

PATIENT
  Sex: Female
  Weight: 61 kg

DRUGS (8)
  1. REBIF [Suspect]
     Indication: MULTIPLE SCLEROSIS
     Route: 065
     Dates: start: 20040101, end: 20080101
  2. SOLU-MEDROL [Concomitant]
     Indication: MULTIPLE SCLEROSIS
     Route: 042
  3. REBIF [Suspect]
     Route: 058
     Dates: start: 20091014
  4. SIMVASTATIN [Concomitant]
     Route: 065
  5. CYMBALTA [Concomitant]
     Indication: TRIGEMINAL NEURALGIA
     Route: 065
  6. PROVIGIL [Concomitant]
     Route: 065
  7. CARBAMAZEPINE [Concomitant]
     Indication: TRIGEMINAL NEURALGIA
     Route: 065
  8. BACLOFEN [Concomitant]
     Route: 065

REACTIONS (3)
  - VITAMIN D DECREASED [None]
  - UTERINE LEIOMYOMA [None]
  - UTERINE SPASM [None]
